FAERS Safety Report 4704696-6 (Version None)
Quarter: 2005Q2

REPORT INFORMATION
  Report Type: 
  Country: None (occurrence: None)
  Receive Date: 20050630
  Receipt Date: 20050324
  Transmission Date: 20051028
  Serious: Yes (Hospitalization, Other)
  Sender: FDA-Public Use
  Company Number: US-MERCK-0503USA04797

PATIENT
  Age: 62 Year
  Sex: Male
  Weight: 91 kg

DRUGS (17)
  1. VIOXX [Suspect]
     Indication: OSTEOARTHRITIS
     Route: 048
     Dates: start: 19991201, end: 20040101
  2. NORVASC [Concomitant]
     Route: 065
  3. VASOTEC [Concomitant]
     Route: 065
     Dates: start: 19990127, end: 20000806
  4. NEURONTIN [Concomitant]
     Route: 065
  5. TENORMIN [Concomitant]
     Route: 065
     Dates: start: 19990125, end: 20000508
  6. FUROSEMIDE [Concomitant]
     Route: 065
  7. DIGITEK [Concomitant]
     Route: 065
  8. COUMADIN [Concomitant]
     Route: 065
     Dates: start: 20000101
  9. ATENOLOL [Concomitant]
     Route: 065
  10. AMOXIL [Concomitant]
     Route: 065
  11. NOVOLIN [Concomitant]
     Route: 065
  12. [THERAPY UNSPECIFIED] [Concomitant]
     Route: 065
  13. ZOLOFT [Concomitant]
     Route: 065
     Dates: start: 20020101, end: 20030101
  14. ENALAPRIL MALEATE [Concomitant]
     Route: 065
  15. PAXIL [Concomitant]
     Route: 065
     Dates: start: 20020101, end: 20030101
  16. PLAVIX [Concomitant]
     Route: 065
  17. PAROXETINE [Concomitant]
     Route: 065

REACTIONS (25)
  - ANGINA PECTORIS [None]
  - ATHEROSCLEROSIS [None]
  - CARDIAC DISORDER [None]
  - CARDIAC FAILURE CONGESTIVE [None]
  - CARDIAC PACEMAKER BATTERY REPLACEMENT [None]
  - CARDIOVASCULAR DISORDER [None]
  - CEREBROVASCULAR ACCIDENT [None]
  - CHEST PAIN [None]
  - COAGULOPATHY [None]
  - CORONARY ARTERY DISEASE [None]
  - DEEP VEIN THROMBOSIS [None]
  - GASTRIC ULCER [None]
  - GLAUCOMA [None]
  - HEART DISEASE CONGENITAL [None]
  - HEART RATE IRREGULAR [None]
  - HYPERTENSION [None]
  - INFARCTION [None]
  - MITRAL VALVE INCOMPETENCE [None]
  - MYOCARDIAL INFARCTION [None]
  - OEDEMA PERIPHERAL [None]
  - SCAR [None]
  - TRANSIENT ISCHAEMIC ATTACK [None]
  - TRICUSPID VALVE INCOMPETENCE [None]
  - VENTRICULAR DYSFUNCTION [None]
  - VENTRICULAR EXTRASYSTOLES [None]
